FAERS Safety Report 16837992 (Version 1)
Quarter: 2019Q3

REPORT INFORMATION
  Report Type: Spontaneous
  Country: US (occurrence: US)
  Receive Date: 20190923
  Receipt Date: 20190923
  Transmission Date: 20191005
  Serious: Yes (Hospitalization)
  Sender: FDA-Public Use
  Company Number: US-TEVA-2019-US-1112080

PATIENT
  Age: 49 Year
  Sex: Female

DRUGS (3)
  1. ZOLEDRONIC-ACID [Suspect]
     Active Substance: ZOLEDRONIC ACID
     Indication: MILK-ALKALI SYNDROME
     Dosage: ONE-TIME DOSE
     Route: 065
  2. CALCITONIN [Concomitant]
     Active Substance: CALCITONIN
     Indication: MILK-ALKALI SYNDROME
     Dosage: ONE-TIME DOSE
     Route: 065
  3. CALCIUM CARBONATE. [Suspect]
     Active Substance: CALCIUM CARBONATE
     Indication: GASTROOESOPHAGEAL REFLUX DISEASE
     Dosage: OVER THE PAST 30 YEARS
     Route: 065

REACTIONS (4)
  - Milk-alkali syndrome [Recovering/Resolving]
  - Pyrexia [Recovered/Resolved]
  - Diarrhoea [Recovered/Resolved]
  - Hypocalcaemia [Recovering/Resolving]
